FAERS Safety Report 6840199-0 (Version None)
Quarter: 2010Q3

REPORT INFORMATION
  Report Type: 
  Country: None (occurrence: None)
  Receive Date: 20100713
  Receipt Date: 20100713
  Transmission Date: 20110219
  Serious: No
  Sender: FDA-Public Use
  Company Number: None

PATIENT
  Age: 45 Year
  Sex: Female
  Weight: 79.5 kg

DRUGS (1)
  1. LAMISIL [Suspect]
     Indication: ONYCHOMYCOSIS
     Dosage: 1 DAILY ORAL
     Route: 048
     Dates: start: 20100423, end: 20100623

REACTIONS (5)
  - ASTHENIA [None]
  - DEHYDRATION [None]
  - EMOTIONAL DISORDER [None]
  - HEADACHE [None]
  - OROPHARYNGEAL PAIN [None]
